FAERS Safety Report 21400327 (Version 1)
Quarter: 2022Q3

REPORT INFORMATION
  Report Type: Spontaneous
  Country: US (occurrence: None)
  Receive Date: 20220930
  Receipt Date: 20220930
  Transmission Date: 20221027
  Serious: No
  Sender: FDA-Public Use
  Company Number: None

PATIENT
  Age: 60 Year
  Sex: Female

DRUGS (8)
  1. OXERVATE [Suspect]
     Active Substance: CENEGERMIN-BKBJ
     Indication: Neurotrophic keratopathy
     Dosage: OTHER FREQUENCY : 6XDAY/2HR INTERVAL;?
     Route: 047
  2. VALTREX [Concomitant]
     Active Substance: VALACYCLOVIR HYDROCHLORIDE
  3. CYCLOSPORINE [Concomitant]
     Active Substance: CYCLOSPORINE
  4. DROPERETTE [Concomitant]
  5. AMLODIPINE BESYLATE [Concomitant]
     Active Substance: AMLODIPINE BESYLATE
  6. METOPROLOL SUCCINATE [Concomitant]
     Active Substance: METOPROLOL SUCCINATE
  7. PREDNISOLONE-NEPAFENAC [Concomitant]
  8. UPNEEQ DROPERETTE [Concomitant]

REACTIONS (3)
  - Product leakage [None]
  - Product container seal issue [None]
  - Product dose omission issue [None]

NARRATIVE: CASE EVENT DATE: 20220928
